FAERS Safety Report 17581586 (Version 2)
Quarter: 2022Q2

REPORT INFORMATION
  Report Type: Report from Study
  Country: BR (occurrence: BR)
  Receive Date: 20200325
  Receipt Date: 20220422
  Transmission Date: 20220721
  Serious: Yes (Hospitalization)
  Sender: FDA-Public Use
  Company Number: BR-009507513-1804BRA001102

PATIENT
  Age: 71 Year
  Sex: Male
  Weight: 110.5 kg

DRUGS (23)
  1. PEMBROLIZUMAB [Suspect]
     Active Substance: PEMBROLIZUMAB
     Indication: Transitional cell carcinoma
     Dosage: 200 MILLIGRAM, Q3W
     Route: 042
     Dates: start: 20171229, end: 20180209
  2. PEMBROLIZUMAB [Suspect]
     Active Substance: PEMBROLIZUMAB
     Dosage: 200 MILLIGRAM, Q3W
     Route: 042
     Dates: start: 20180301, end: 20180301
  3. PEMBROLIZUMAB [Suspect]
     Active Substance: PEMBROLIZUMAB
     Dosage: 200 MILLIGRAM, Q3W
     Route: 042
     Dates: start: 20180323, end: 20200123
  4. CARBOPLATIN [Suspect]
     Active Substance: CARBOPLATIN
     Indication: Transitional cell carcinoma
     Dosage: AREA UNDER THE CURVE (AUC) 5 OR 4.5, Q3W
     Route: 042
     Dates: start: 20171229, end: 20180209
  5. CARBOPLATIN [Suspect]
     Active Substance: CARBOPLATIN
     Dosage: AUC 5 OR 4.5, Q3W
     Route: 042
     Dates: start: 20180301, end: 20180301
  6. CARBOPLATIN [Suspect]
     Active Substance: CARBOPLATIN
     Dosage: AUC 5 OR 4.5, Q3W
     Route: 042
     Dates: start: 20180323, end: 20180413
  7. GEMCITABINE [Suspect]
     Active Substance: GEMCITABINE
     Indication: Transitional cell carcinoma
     Dosage: 1000 MILLIGRAM/SQ. METER, ON DAY 1 AND 8 OF EACH 3-WEEK CYCLE
     Route: 042
     Dates: start: 20171229, end: 20180301
  8. GEMCITABINE [Suspect]
     Active Substance: GEMCITABINE
     Dosage: 1000 MILLIGRAM/SQ. METER, ON DAY 1 AND 8 OF EACH 3-WEEK CYCLE
     Route: 042
     Dates: start: 20180309, end: 20180309
  9. GEMCITABINE [Suspect]
     Active Substance: GEMCITABINE
     Dosage: 1000 MILLIGRAM/SQ. METER, ON DAY 1 AND 8 OF EACH 3-WEEK CYCLE
     Route: 042
     Dates: start: 20180323, end: 20180419
  10. UNASYN [Suspect]
     Active Substance: AMPICILLIN SODIUM\SULBACTAM SODIUM
     Indication: Cellulitis
     Dosage: 3 MILLIGRAM, QID
     Route: 042
     Dates: start: 20180328, end: 20180405
  11. PROPRANOLOL [Concomitant]
     Active Substance: PROPRANOLOL HYDROCHLORIDE
     Indication: Hypertension
     Dosage: 40 MILLIGRAM, BID
     Route: 048
     Dates: start: 200212
  12. HYDROCHLOROTHIAZIDE [Concomitant]
     Active Substance: HYDROCHLOROTHIAZIDE
     Indication: Hypertension
     Dosage: 25 MILLIGRAM, QD
     Route: 048
     Dates: start: 200212, end: 20210901
  13. SIMVASTATIN [Concomitant]
     Active Substance: SIMVASTATIN
     Indication: Cerebrovascular accident
     Dosage: 20 MILLIGRAM, QD
     Route: 048
     Dates: start: 201112
  14. NIMESULIDE [Concomitant]
     Active Substance: NIMESULIDE
     Indication: Tumour pain
     Dosage: 100 MILLIGRAM, TID
     Route: 048
     Dates: start: 20180305, end: 20180323
  15. GRANISETRON [Concomitant]
     Active Substance: GRANISETRON
     Indication: Prophylaxis
     Dosage: 1 MILLIGRAM, ONCE
     Route: 042
     Dates: start: 20180309, end: 20180309
  16. GRANISETRON [Concomitant]
     Active Substance: GRANISETRON
     Indication: Premedication
  17. DEXAMETHASONE [Concomitant]
     Active Substance: DEXAMETHASONE
     Indication: Prophylaxis
     Dosage: 10 MILLIGRAM, ONCE
     Route: 042
     Dates: start: 20180309, end: 20180309
  18. DEXAMETHASONE [Concomitant]
     Active Substance: DEXAMETHASONE
     Indication: Premedication
  19. RANITIDINE [Concomitant]
     Active Substance: RANITIDINE
     Indication: Prophylaxis
     Dosage: 50 MILLIGRAM, ONCE
     Route: 042
     Dates: start: 20180309, end: 20180309
  20. RANITIDINE [Concomitant]
     Active Substance: RANITIDINE
     Indication: Premedication
  21. DIPHENHYDRAMINE [Concomitant]
     Active Substance: DIPHENHYDRAMINE
     Indication: Prophylaxis
     Dosage: 50 MILLIGRAM, ONCE
     Route: 042
     Dates: start: 20180309, end: 20180309
  22. DIPHENHYDRAMINE [Concomitant]
     Active Substance: DIPHENHYDRAMINE
     Indication: Premedication
  23. LOSARTAN POTASSIUM [Concomitant]
     Active Substance: LOSARTAN POTASSIUM
     Indication: Hypertension
     Dosage: 25 MILLIGRAM, BID, FORMULATION TABLET
     Route: 048
     Dates: start: 200212

REACTIONS (1)
  - Cellulitis [Recovered/Resolved]

NARRATIVE: CASE EVENT DATE: 20180319
